FAERS Safety Report 24390795 (Version 1)
Quarter: 2024Q4

REPORT INFORMATION
  Report Type: Spontaneous
  Country: AU (occurrence: AU)
  Receive Date: 20241003
  Receipt Date: 20241003
  Transmission Date: 20250115
  Serious: Yes (Hospitalization)
  Sender: AMGEN
  Company Number: AU-AMGEN-AUSSP2024192923

PATIENT
  Age: 77 Year
  Sex: Male

DRUGS (5)
  1. PEGFILGRASTIM [Suspect]
     Active Substance: PEGFILGRASTIM
     Indication: Product used for unknown indication
     Dosage: UNK (C1D2)
     Route: 065
  2. ONVAPEGLEUKIN ALFA [Suspect]
     Active Substance: ONVAPEGLEUKIN ALFA
     Indication: Non-small cell lung cancer
     Dosage: 120 MICROGRAM/KILOGRAM, EVERY 3 WEEKS, CYCLE 1 DAY1  (C1D1),
     Route: 065
     Dates: start: 20240624, end: 20240624
  3. KEYTRUDA [Suspect]
     Active Substance: PEMBROLIZUMAB
     Indication: Non-small cell lung cancer
     Dosage: 200 MILLIGRAM, EVERY 3 WEEKS, CYCLE 1DAY 1 (C1D1),
     Route: 042
     Dates: start: 20240624, end: 20240624
  4. PACLITAXEL [Suspect]
     Active Substance: PACLITAXEL
     Indication: Non-small cell lung cancer
     Dosage: 80 MILLIGRAM/SQ. METER
     Route: 065
     Dates: start: 20240624
  5. CARBOPLATIN [Suspect]
     Active Substance: CARBOPLATIN
     Indication: Non-small cell lung cancer
     Dosage: UNK
     Route: 065
     Dates: start: 20240624

REACTIONS (1)
  - Pyrexia [Not Recovered/Not Resolved]

NARRATIVE: CASE EVENT DATE: 20240627
